FAERS Safety Report 8397559 (Version 3)
Quarter: 2013Q2

REPORT INFORMATION
  Report Type: Spontaneous
  Country: US (occurrence: None)
  Receive Date: 20111227
  Receipt Date: 20120426
  Transmission Date: 20140414
  Serious: No
  Sender: FDA-Public Use
  Company Number: PHEH2011US010112

PATIENT
  Age: 51 Year
  Sex: Female
  Weight: 80.7 kg

DRUGS (23)
  1. GILENYA [Suspect]
     Indication: MULTIPLE SCLEROSIS
     Dosage: 0.5 MG, EVERYDAY, ORAL
     Route: 048
  2. EFFEXOR XR [Concomitant]
  3. CORTEF [Concomitant]
  4. PAXIL [Concomitant]
  5. LODINE [Concomitant]
  6. PREDNISONE [Concomitant]
  7. TOVIAZ [Concomitant]
  8. LIPITOR [Concomitant]
  9. VICODIN [Concomitant]
  10. RITALIN [Concomitant]
  11. BUSPAR [Concomitant]
  12. MIDODRINE HYDROCHLORIDE [Concomitant]
  13. VALIUM [Concomitant]
  14. BACLOFEN [Concomitant]
  15. RESTORIL [Concomitant]
  16. ZANAFLEX [Concomitant]
  17. OXYCONTIN [Concomitant]
  18. PERCOCET [Concomitant]
  19. ABILIFY [Concomitant]
  20. STOOL SOFTENER (DOCUSATE SODIUM) [Concomitant]
  21. CENESTIN [Concomitant]
  22. FLORINEF ACETATE [Concomitant]
  23. MYSOLINE [Concomitant]

REACTIONS (10)
  - DECREASED APPETITE [None]
  - Multiple sclerosis relapse [None]
  - Anxiety [None]
  - Oedema peripheral [None]
  - Depression [None]
  - Hypoaesthesia [None]
  - Memory impairment [None]
  - Speech disorder [None]
  - Disturbance in attention [None]
  - Back pain [None]
